FAERS Safety Report 11483033 (Version 1)
Quarter: 2015Q3

REPORT INFORMATION
  Report Type: Spontaneous
  Country: US (occurrence: US)
  Receive Date: 20150903
  Receipt Date: 20150903
  Transmission Date: 20151125
  Serious: No
  Sender: FDA-Public Use
  Company Number: US-ELI_LILLY_AND_COMPANY-US201108008326

PATIENT
  Age: 54 Year
  Sex: Female

DRUGS (2)
  1. CYMBALTA [Suspect]
     Active Substance: DULOXETINE HYDROCHLORIDE
     Dosage: 30 MG, QD
     Dates: start: 20110819
  2. CYMBALTA [Suspect]
     Active Substance: DULOXETINE HYDROCHLORIDE
     Indication: BIPOLAR DISORDER
     Dosage: 60 MG, QD
     Dates: start: 2011, end: 20110818

REACTIONS (7)
  - Chills [Unknown]
  - Drug withdrawal syndrome [Unknown]
  - Nausea [Unknown]
  - Intentional product misuse [Recovered/Resolved]
  - Decreased appetite [Unknown]
  - Feeling hot [Unknown]
  - Off label use [Not Recovered/Not Resolved]
